FAERS Safety Report 6261376-6 (Version None)
Quarter: 2009Q3

REPORT INFORMATION
  Report Type: 
  Country: None (occurrence: None)
  Receive Date: 20090709
  Receipt Date: 20090627
  Transmission Date: 20100115
  Serious: Yes (Death)
  Sender: FDA-Public Use
  Company Number: US-PFIZER INC-2008016228

PATIENT
  Sex: Female

DRUGS (1)
  1. SUTENT [Suspect]
     Dosage: 50 MG, 1X/DAY
     Dates: start: 20070901

REACTIONS (5)
  - BONE PAIN [None]
  - DEATH [None]
  - DEHYDRATION [None]
  - RASH MACULAR [None]
  - VOMITING [None]
